FAERS Safety Report 8070234-6 (Version None)
Quarter: 2012Q1

REPORT INFORMATION
  Report Type: 
  Country: None (occurrence: None)
  Receive Date: 20120125
  Receipt Date: 20120120
  Transmission Date: 20120608
  Serious: No
  Sender: FDA-Public Use
  Company Number: US-PFIZER INC-2012017050

PATIENT
  Sex: Male
  Weight: 78.9 kg

DRUGS (4)
  1. VITAMIN D [Concomitant]
     Dosage: UNK
  2. LYRICA [Suspect]
     Indication: NECK PAIN
     Dosage: 25 MG, 2X/DAY
     Route: 048
     Dates: start: 20120104
  3. ACETYLSALICYLIC ACID [Concomitant]
     Dosage: 81 MG, UNK
  4. XANAX [Concomitant]
     Indication: SLEEP DISORDER
     Dosage: 0.5 MG, DAILY

REACTIONS (2)
  - HEADACHE [None]
  - BACK PAIN [None]
